FAERS Safety Report 9791320 (Version 2)
Quarter: 2014Q1

REPORT INFORMATION
  Report Type: Report from Study
  Country: US (occurrence: US)
  Receive Date: 20140101
  Receipt Date: 20140101
  Transmission Date: 20141002
  Serious: Yes (Death)
  Sender: FDA-Public Use
  Company Number: US-ROCHE-1284957

PATIENT
  Sex: Female

DRUGS (4)
  1. ZELBORAF [Suspect]
     Indication: MALIGNANT MELANOMA
     Dosage: INDICATION: STAGE 4 MELANOMA METASTATIC TO BRAIN AND STERNUM/RIBS
     Route: 048
  2. DECADRON [Concomitant]
  3. XANAX [Concomitant]
  4. VITAMIN B12 [Concomitant]

REACTIONS (4)
  - Fatigue [Not Recovered/Not Resolved]
  - Nausea [Recovering/Resolving]
  - Diarrhoea [Recovering/Resolving]
  - Death [Fatal]
